FAERS Safety Report 22142814 (Version 1)
Quarter: 2023Q1

REPORT INFORMATION
  Report Type: Spontaneous
  Country: US (occurrence: US)
  Receive Date: 20230327
  Receipt Date: 20230327
  Transmission Date: 20230418
  Serious: Yes (Other)
  Sender: FDA-Public Use
  Company Number: US-GLENMARK PHARMACEUTICALS-2023GMK079944

PATIENT

DRUGS (2)
  1. GABAPENTIN [Suspect]
     Active Substance: GABAPENTIN
     Indication: Product used for unknown indication
     Dosage: 300 MILLIGRAM CAPSULES  2 TO 3 TIMES A DAY TWO YEARS AGO
     Route: 065
  2. GABAPENTIN [Suspect]
     Active Substance: GABAPENTIN
     Dosage: 40 DOSAGE FORM, QD (FORTY 300 MG CAPSULES PER DAY-12 GRAMS)
     Route: 065

REACTIONS (28)
  - Toxicity to various agents [Unknown]
  - Intentional product misuse [Unknown]
  - Nocturia [Unknown]
  - Polyuria [Unknown]
  - Asthenia [Unknown]
  - Withdrawal syndrome [Unknown]
  - Hypokinesia [Unknown]
  - Energy increased [Unknown]
  - Nervousness [Unknown]
  - Irritability [Unknown]
  - Depression [Unknown]
  - Restlessness [Unknown]
  - Back pain [Unknown]
  - Flank pain [Unknown]
  - Palpitations [Unknown]
  - Road traffic accident [Unknown]
  - Hyperhidrosis [Unknown]
  - Diarrhoea [Unknown]
  - Insomnia [Unknown]
  - Confusional state [Unknown]
  - Euphoric mood [Unknown]
  - Libido increased [Unknown]
  - Coordination abnormal [Unknown]
  - Somnolence [Unknown]
  - Fatigue [Unknown]
  - Dizziness [Unknown]
  - Drug dependence [Unknown]
  - Ataxia [Unknown]
